FAERS Safety Report 21572386 (Version 2)
Quarter: 2022Q4

REPORT INFORMATION
  Report Type: Spontaneous
  Country: US (occurrence: US)
  Receive Date: 20221109
  Receipt Date: 20221111
  Transmission Date: 20230112
  Serious: No
  Sender: FDA-Public Use
  Company Number: US-PFIZER INC-202201286826

PATIENT
  Age: 66 Year
  Sex: Female
  Weight: 74.84 kg

DRUGS (1)
  1. PAXLOVID [Suspect]
     Active Substance: NIRMATRELVIR\RITONAVIR
     Indication: COVID-19 treatment
     Dosage: [PF-07321332 300 MG]/[RITONAVIR 100 MG]; 2X/DAY
     Dates: start: 20221107

REACTIONS (3)
  - Taste disorder [Recovered/Resolved]
  - Nausea [Not Recovered/Not Resolved]
  - Dysgeusia [Unknown]

NARRATIVE: CASE EVENT DATE: 20221107
